FAERS Safety Report 14014636 (Version 1)
Quarter: 2017Q3

REPORT INFORMATION
  Report Type: Spontaneous
  Country: US (occurrence: None)
  Receive Date: 20170926
  Receipt Date: 20170926
  Transmission Date: 20171128
  Serious: Yes (Hospitalization, Other)
  Sender: FDA-Public Use
  Company Number: None

PATIENT
  Age: 76 Year
  Sex: Male
  Weight: 63.5 kg

DRUGS (2)
  1. NIVOLUMAB [Suspect]
     Active Substance: NIVOLUMAB
     Indication: METASTATIC MALIGNANT MELANOMA
     Route: 042
     Dates: start: 20170403, end: 20170905
  2. IPILUMUMAB [Suspect]
     Active Substance: IPILIMUMAB
     Dosage: 69 MG EVERY  6 WEEKS IV
     Route: 042
     Dates: start: 20170403, end: 20170905

REACTIONS (2)
  - Angina unstable [None]
  - Vascular stent restenosis [None]

NARRATIVE: CASE EVENT DATE: 20170921
